FAERS Safety Report 18494496 (Version 1)
Quarter: 2020Q4

REPORT INFORMATION
  Report Type: Spontaneous
  Country: PT (occurrence: PT)
  Receive Date: 20201112
  Receipt Date: 20201112
  Transmission Date: 20210114
  Serious: Yes (Other)
  Sender: FDA-Public Use
  Company Number: NVSC2020PT300169

PATIENT
  Age: 60 Year
  Sex: Female

DRUGS (4)
  1. RIBOCICLIB. [Suspect]
     Active Substance: RIBOCICLIB
     Indication: BREAST CANCER STAGE IV
     Dosage: 600 MG, QD
     Route: 065
     Dates: start: 20180104
  2. RIBOCICLIB. [Suspect]
     Active Substance: RIBOCICLIB
     Dosage: 200 MG, QD
     Route: 065
  3. RIBOCICLIB. [Suspect]
     Active Substance: RIBOCICLIB
     Dosage: 400 MG, QD
     Route: 065
  4. ANASTROZOLE. [Concomitant]
     Active Substance: ANASTROZOLE
     Indication: BREAST CANCER STAGE IV
     Dosage: 1 MG, QD
     Route: 065
     Dates: start: 20180104

REACTIONS (8)
  - Minimal residual disease [Unknown]
  - Pleural fibrosis [Unknown]
  - Invasive breast carcinoma [Unknown]
  - Metastases to lymph nodes [Unknown]
  - Therapy partial responder [Unknown]
  - Neutropenia [Not Recovered/Not Resolved]
  - Bronchiectasis [Unknown]
  - Seroma [Unknown]
